FAERS Safety Report 9663625 (Version 1)
Quarter: 2013Q4

REPORT INFORMATION
  Report Type: Spontaneous
  Country: US (occurrence: US)
  Receive Date: 20131101
  Receipt Date: 20131101
  Transmission Date: 20140711
  Serious: No
  Sender: FDA-Public Use
  Company Number: US-ENDO PHARMACEUTICALS INC.-PRHC20120001

PATIENT
  Sex: Female
  Weight: 59.02 kg

DRUGS (1)
  1. PROPOXYPHENE HYDROCHLORIDE CAPSULES [Suspect]
     Indication: PAIN
     Route: 048
     Dates: start: 20080129, end: 2012

REACTIONS (4)
  - Angina pectoris [Not Recovered/Not Resolved]
  - Heart rate irregular [Not Recovered/Not Resolved]
  - Condition aggravated [Not Recovered/Not Resolved]
  - Asthma [Not Recovered/Not Resolved]
